FAERS Safety Report 4555079-3 (Version None)
Quarter: 2004Q4

REPORT INFORMATION
  Report Type: 
  Country: None (occurrence: None)
  Receive Date: 20041217
  Receipt Date: 20040810
  Transmission Date: 20050328
  Serious: No
  Sender: FDA-Public Use
  Company Number: 2004-BP-05372BP

PATIENT
  Age: 76 Year
  Sex: Female
  Weight: 38.1 kg

DRUGS (5)
  1. SPIRIVA HANDIHANDLER (TIOTROPIUM BROMIDE) [Suspect]
     Indication: CHRONIC OBSTRUCTIVE AIRWAYS DISEASE
     Dosage: 18 MCG (18 MCG, 1 N 1 D), IH
     Route: 055
     Dates: start: 20040611
  2. ALLEGRA [Concomitant]
  3. FLONASE [Concomitant]
  4. ADVAIR (SERETIDE MITE) [Concomitant]
  5. ALBUTEROL [Concomitant]

REACTIONS (1)
  - THERAPEUTIC RESPONSE DECREASED [None]
